FAERS Safety Report 21734363 (Version 4)
Quarter: 2023Q1

REPORT INFORMATION
  Report Type: Spontaneous
  Country: US (occurrence: US)
  Receive Date: 20221215
  Receipt Date: 20230207
  Transmission Date: 20230418
  Serious: No
  Sender: FDA-Public Use
  Company Number: US-BRISTOL-MYERS SQUIBB COMPANY-2022-153334

PATIENT
  Age: 55 Year
  Sex: Female

DRUGS (3)
  1. SOTYKTU [Suspect]
     Active Substance: DEUCRAVACITINIB
     Indication: Psoriasis
     Route: 048
     Dates: start: 20221017
  2. SOTYKTU [Suspect]
     Active Substance: DEUCRAVACITINIB
     Route: 048
     Dates: start: 202211
  3. SOTYKTU [Suspect]
     Active Substance: DEUCRAVACITINIB
     Dosage: FREQ: DAILY
     Route: 048
     Dates: start: 202212

REACTIONS (6)
  - Lip ulceration [Unknown]
  - Aphthous ulcer [Unknown]
  - Dermatitis [Unknown]
  - Erythema [Unknown]
  - Stomatitis [Unknown]
  - Blister [Unknown]

NARRATIVE: CASE EVENT DATE: 20221115
